FAERS Safety Report 7442270-1 (Version None)
Quarter: 2011Q2

REPORT INFORMATION
  Report Type: 
  Country: None (occurrence: None)
  Receive Date: 20110428
  Receipt Date: 20100302
  Transmission Date: 20111010
  Serious: No
  Sender: FDA-Public Use
  Company Number: US-ASTRAZENECA-2010SE09023

PATIENT
  Age: 19 Year
  Sex: Female
  Weight: 47.6 kg

DRUGS (3)
  1. VICODIN [Concomitant]
     Indication: PAIN
  2. CIPRO [Concomitant]
     Indication: URINARY TRACT INFECTION
  3. ZOMIG [Suspect]
     Indication: MIGRAINE
     Dosage: 5 MG THREE TO FOUR TIMES A WEEK
     Route: 065
     Dates: start: 20090101

REACTIONS (2)
  - URINARY TRACT INFECTION [None]
  - URTICARIA [None]
